FAERS Safety Report 7396527-3 (Version None)
Quarter: 2011Q2

REPORT INFORMATION
  Report Type: 
  Country: None (occurrence: None)
  Receive Date: 20110406
  Receipt Date: 20110331
  Transmission Date: 20111010
  Serious: Yes (Death)
  Sender: FDA-Public Use
  Company Number: DE-BRISTOL-MYERS SQUIBB COMPANY-15649254

PATIENT
  Age: 76 Year

DRUGS (5)
  1. CETUXIMAB [Suspect]
     Indication: HEAD AND NECK CANCER
     Dosage: 1DF: 16-16MAR2011:760 UNITS NOS 23-23MAR2011:480 UNITS NOS
     Route: 042
     Dates: start: 20110316, end: 20110323
  2. BETAMETHASONE [Concomitant]
  3. GENTAMICIN [Concomitant]
  4. CARBOPLATIN [Suspect]
     Indication: HEAD AND NECK CANCER
     Dosage: 1DF: 135 UNITS NOS
     Route: 042
     Dates: start: 20110316, end: 20110323
  5. DOCETAXEL [Suspect]
     Indication: HEAD AND NECK CANCER
     Dosage: 1DF:66 UNITS NOS
     Route: 042
     Dates: start: 20110316, end: 20110323

REACTIONS (1)
  - PULMONARY EMBOLISM [None]
